FAERS Safety Report 8896452 (Version 1)
Quarter: 2012Q4

REPORT INFORMATION
  Report Type: Spontaneous
  Country: PL (occurrence: None)
  Receive Date: 20121105
  Receipt Date: 20121105
  Transmission Date: 20130627
  Serious: Yes (Other)
  Sender: FDA-Public Use
  Company Number: 2010EU001607

PATIENT
  Age: 46 Year
  Sex: Male
  Weight: 92 kg

DRUGS (3)
  1. PROGRAF [Suspect]
     Indication: HEART TRANSPLANT
     Route: 048
     Dates: start: 20100321
  2. CELLCEPT (MYCOPHENOLATE MOFETIL) TABLET [Concomitant]
  3. ENCORTON (PREDNISONE) [Concomitant]

REACTIONS (1)
  - Cardiomyopathy [None]
